FAERS Safety Report 5790650-2 (Version None)
Quarter: 2008Q2

REPORT INFORMATION
  Report Type: 
  Country: None (occurrence: None)
  Receive Date: 20080626
  Receipt Date: 20080502
  Transmission Date: 20081010
  Serious: No
  Sender: FDA-Public Use
  Company Number: A0726033A

PATIENT
  Age: 56 Year
  Sex: Male
  Weight: 86 kg

DRUGS (3)
  1. ALLI [Suspect]
     Dates: start: 20080415
  2. COLONIC CLEANSER [Concomitant]
  3. MULTI-VITAMIN [Concomitant]

REACTIONS (5)
  - ABDOMINAL DISCOMFORT [None]
  - CONSTIPATION [None]
  - FLATULENCE [None]
  - INTESTINAL FUNCTIONAL DISORDER [None]
  - STEATORRHOEA [None]
